FAERS Safety Report 20612370 (Version 1)
Quarter: 2022Q1

REPORT INFORMATION
  Report Type: Spontaneous
  Country: US (occurrence: US)
  Receive Date: 20220318
  Receipt Date: 20220318
  Transmission Date: 20220424
  Serious: No
  Sender: FDA-Public Use
  Company Number: US-SEPTODONT-2021006137

PATIENT
  Sex: Male

DRUGS (1)
  1. EPINEPHRINE\LIDOCAINE [Suspect]
     Active Substance: EPINEPHRINE\LIDOCAINE
     Dosage: 1-4 CARPULES
     Route: 004

REACTIONS (1)
  - Dizziness [Recovered/Resolved]
